FAERS Safety Report 4274072-1 (Version None)
Quarter: 2004Q1

REPORT INFORMATION
  Report Type: 
  Country: None (occurrence: None)
  Receive Date: 20040115
  Receipt Date: 20040107
  Transmission Date: 20041129
  Serious: Yes (Hospitalization)
  Sender: FDA-Public Use
  Company Number: FR-JNJFOC-20040101086

PATIENT
  Age: 56 Year
  Sex: Female

DRUGS (6)
  1. RISPERDAL [Suspect]
     Indication: BIPOLAR I DISORDER
     Dosage: 2 MG, 1 IN 1 DAY, ORAL
     Route: 048
     Dates: start: 20031029
  2. DEPAKOTE [Suspect]
     Indication: BIPOLAR I DISORDER
     Dosage: 750 MG, IN 1 DAY, ORAL
     Route: 048
     Dates: start: 20031029
  3. ATENOLOL [Concomitant]
  4. HYTACAND (BLOPRESS PLUS) [Concomitant]
  5. STABLON (TIANEPTINE) [Concomitant]
  6. OXAZEPAM [Concomitant]

REACTIONS (2)
  - DRUG INTERACTION [None]
  - NEUTROPENIA [None]
